FAERS Safety Report 4757775-1 (Version None)
Quarter: 2005Q3

REPORT INFORMATION
  Report Type: 
  Country: None (occurrence: None)
  Receive Date: 20050831
  Receipt Date: 20050613
  Transmission Date: 20060218
  Serious: Yes (Life-Threatening, Hospitalization)
  Sender: FDA-Public Use
  Company Number: JP-BRISTOL-MYERS SQUIBB COMPANY-13003942

PATIENT
  Age: 74 Year
  Sex: Male

DRUGS (14)
  1. PARAPLATIN [Suspect]
     Indication: LUNG NEOPLASM MALIGNANT
     Route: 042
     Dates: start: 20050412, end: 20050412
  2. NAVELBINE [Suspect]
     Indication: LUNG NEOPLASM MALIGNANT
     Route: 042
     Dates: start: 20050412, end: 20050419
  3. MAXIPIME [Concomitant]
     Indication: FEBRILE NEUTROPENIA
     Route: 042
     Dates: start: 20050426, end: 20050506
  4. FUNGIZONE [Concomitant]
     Route: 048
     Dates: start: 20050426, end: 20050502
  5. COTRIM [Concomitant]
     Route: 048
     Dates: start: 20050426, end: 20050502
  6. NEUTROGIN [Concomitant]
     Route: 042
     Dates: start: 20050425, end: 20050501
  7. PRIMPERAN INJ [Concomitant]
     Indication: PREMEDICATION
     Route: 042
     Dates: start: 20050412, end: 20050419
  8. DECADRON [Concomitant]
     Indication: PREMEDICATION
     Route: 041
     Dates: start: 20050412
  9. PURSENNID [Concomitant]
     Route: 048
     Dates: start: 20050407
  10. AMOBAN [Concomitant]
     Route: 048
     Dates: start: 20050407
  11. GASTER D [Concomitant]
     Route: 048
     Dates: start: 20050407, end: 20050506
  12. MAGMITT [Concomitant]
     Route: 048
     Dates: start: 20050419
  13. LOXONIN [Concomitant]
     Route: 048
     Dates: start: 20050414
  14. KYTRIL [Concomitant]
     Indication: PREMEDICATION
     Route: 042
     Dates: start: 20050412, end: 20050412

REACTIONS (5)
  - ANAEMIA [None]
  - ANOREXIA [None]
  - HYPONATRAEMIA [None]
  - NEUTROPENIA [None]
  - TUBERCULOSIS [None]
